FAERS Safety Report 8790476 (Version 1)
Quarter: 2012Q4

REPORT INFORMATION
  Report Type: Spontaneous
  Country: US (occurrence: None)
  Receive Date: 20120911
  Receipt Date: 20120911
  Transmission Date: 20130627
  Serious: Yes (Hospitalization)
  Sender: FDA-Public Use
  Company Number: None

PATIENT
  Age: 57 Year
  Sex: Male
  Weight: 105.5 kg

DRUGS (2)
  1. CEFAZOLIN\DEXTROSE [Suspect]
     Dosage: 2 GM ONCE IV
     Route: 042
     Dates: start: 20120802, end: 20120802
  2. HYDROCHLOROTHIAZIDE\LISINOPRIL [Suspect]
     Dosage: 2 TAB PO EVERY DAY
     Route: 048
     Dates: start: 20120320, end: 20120801

REACTIONS (1)
  - Angioedema [None]
